FAERS Safety Report 10748754 (Version 1)
Quarter: 2015Q1

REPORT INFORMATION
  Report Type: Spontaneous
  Country: IT (occurrence: IT)
  Receive Date: 20150129
  Receipt Date: 20150129
  Transmission Date: 20150721
  Serious: Yes (Other)
  Sender: FDA-Public Use
  Company Number: IT-ROXANE LABORATORIES, INC.-2015-RO-00137RO

PATIENT
  Age: 52 Year

DRUGS (3)
  1. PREDNISONE. [Suspect]
     Active Substance: PREDNISONE
     Indication: BLAST CRISIS IN MYELOGENOUS LEUKAEMIA
     Dosage: 50 MG
     Route: 065
  2. VINCRISTINE [Suspect]
     Active Substance: VINCRISTINE
     Indication: BLAST CRISIS IN MYELOGENOUS LEUKAEMIA
     Route: 042
  3. DASATINIB [Suspect]
     Active Substance: DASATINIB
     Indication: BLAST CRISIS IN MYELOGENOUS LEUKAEMIA
     Dosage: 140 MG
     Route: 065

REACTIONS (3)
  - Haematotoxicity [Unknown]
  - Constipation [Unknown]
  - Neuropathy peripheral [Unknown]
